FAERS Safety Report 14568167 (Version 1)
Quarter: 2018Q1

REPORT INFORMATION
  Report Type: Spontaneous
  Country: US (occurrence: US)
  Receive Date: 20180223
  Receipt Date: 20180223
  Transmission Date: 20180509
  Serious: Yes (Hospitalization)
  Sender: FDA-Public Use
  Company Number: US-PFIZER INC-2018076767

PATIENT
  Age: 67 Year
  Sex: Female
  Weight: 76.66 kg

DRUGS (13)
  1. LANTUS [Concomitant]
     Active Substance: INSULIN GLARGINE
     Indication: DIABETES MELLITUS
     Dosage: SHOT, ONCE A DAY
  2. HUMALOG [Concomitant]
     Active Substance: INSULIN LISPRO
     Indication: DIABETES MELLITUS
     Dosage: PEN, THREE TIMES A DAY, 10 AT A SLIDING SCALE
  3. LASIX [Concomitant]
     Active Substance: FUROSEMIDE
     Indication: BLOOD PRESSURE ABNORMAL
     Dosage: TWICE A DAY ^RIGHT NOW THEY HAVE ME ON 40 AND 20 MG^
     Route: 048
  4. NEPHRO-VITE [Concomitant]
     Indication: VITAMIN SUPPLEMENTATION
     Dosage: 20 MG, UNK
  5. NOVOLOG [Concomitant]
     Active Substance: INSULIN ASPART
  6. SPIRONOLACTONE. [Concomitant]
     Active Substance: SPIRONOLACTONE
     Indication: BLOOD PRESSURE ABNORMAL
     Dosage: TABLET, ORALLY, ^THAT^S LIKE 20 MG^
     Route: 048
  7. PREDNISONE. [Concomitant]
     Active Substance: PREDNISONE
     Dosage: 5 MG, UNK
  8. OMEPRAZOLE. [Concomitant]
     Active Substance: OMEPRAZOLE
     Indication: ABDOMINAL DISCOMFORT
     Dosage: 20 MG, 1X/DAY
     Route: 048
  9. MYFORTIC [Concomitant]
     Active Substance: MYCOPHENOLATE SODIUM
     Indication: RENAL TRANSPLANT
     Dosage: 180 MG, 2X/DAY
     Route: 048
  10. LASIX [Concomitant]
     Active Substance: FUROSEMIDE
     Indication: DIURETIC THERAPY
  11. HYDRALAZINE [Concomitant]
     Active Substance: HYDRALAZINE HYDROCHLORIDE
     Indication: BLOOD PRESSURE ABNORMAL
     Dosage: 100 MG, 3X/DAY
     Route: 048
  12. METOPROLOL. [Concomitant]
     Active Substance: METOPROLOL
     Indication: BLOOD PRESSURE ABNORMAL
     Dosage: TABLET, ORALLY
     Route: 048
  13. RAPAMUNE [Suspect]
     Active Substance: SIROLIMUS
     Indication: RENAL TRANSPLANT
     Dosage: 3 MG, 1X/DAY
     Route: 048
     Dates: start: 2011

REACTIONS (6)
  - Chondrocalcinosis pyrophosphate [Unknown]
  - Escherichia infection [Unknown]
  - Sepsis [Unknown]
  - Gout [Unknown]
  - Swelling [Not Recovered/Not Resolved]
  - Pain [Unknown]

NARRATIVE: CASE EVENT DATE: 2018
